FAERS Safety Report 10149081 (Version 4)
Quarter: 2014Q2

REPORT INFORMATION
  Report Type: Spontaneous
  Country: US (occurrence: US)
  Receive Date: 20140502
  Receipt Date: 20140604
  Transmission Date: 20141212
  Serious: Yes (Other)
  Sender: FDA-Public Use
  Company Number: US-JNJFOC-20140402818

PATIENT
  Age: 50 Year
  Sex: Male
  Weight: 58.97 kg

DRUGS (1)
  1. STELARA [Suspect]
     Indication: PSORIASIS
     Dosage: PATIENT RECEIVED APPROX. 6 INJECTIONS
     Route: 058

REACTIONS (1)
  - Hepatitis B [Recovering/Resolving]
